FAERS Safety Report 18952944 (Version 1)
Quarter: 2021Q1

REPORT INFORMATION
  Report Type: Spontaneous
  Country: US (occurrence: US)
  Receive Date: 20210227
  Receipt Date: 20210227
  Transmission Date: 20210420
  Serious: Yes (Death)
  Sender: FDA-Public Use
  Company Number: None

PATIENT
  Age: 67 Year
  Sex: Male
  Weight: 81 kg

DRUGS (2)
  1. GABAPENTIN. [Suspect]
     Active Substance: GABAPENTIN
     Dosage: ?          QUANTITY:3 CAPSULE(S);?
  2. DILANTIN [Concomitant]
     Active Substance: PHENYTOIN

REACTIONS (10)
  - Eyelid ptosis [None]
  - Trismus [None]
  - Seizure [None]
  - Muscular weakness [None]
  - Wound [None]
  - Hypersomnia [None]
  - Dyskinesia [None]
  - Vomiting [None]
  - Unresponsive to stimuli [None]
  - Sepsis [None]

NARRATIVE: CASE EVENT DATE: 20210219
